FAERS Safety Report 8491494-3 (Version None)
Quarter: 2012Q2

REPORT INFORMATION
  Report Type: 
  Country: None (occurrence: None)
  Receive Date: 20120402
  Receipt Date: 20100121
  Transmission Date: 20120825
  Serious: Yes (Other)
  Sender: FDA-Public Use
  Company Number: PHEH2009US16132

PATIENT
  Age: 60 Year
  Sex: Female

DRUGS (8)
  1. EXFORGE [Suspect]
     Dosage: 160/5 MG, ORAL
     Route: 048
     Dates: start: 20090814, end: 20091113
  2. ZOCOR [Concomitant]
  3. DIOVAN HCT [Concomitant]
  4. BYSTOLIC [Concomitant]
  5. ZOLOFT [Concomitant]
  6. XANAX [Concomitant]
  7. BALACET [Concomitant]
  8. PREVACID [Concomitant]

REACTIONS (4)
  - PAIN IN EXTREMITY [None]
  - OEDEMA PERIPHERAL [None]
  - JOINT SWELLING [None]
  - OEDEMA [None]
